FAERS Safety Report 7110615-8 (Version None)
Quarter: 2010Q4

REPORT INFORMATION
  Report Type: 
  Country: None (occurrence: None)
  Receive Date: 20101118
  Receipt Date: 20101104
  Transmission Date: 20110411
  Serious: Yes (Other)
  Sender: FDA-Public Use
  Company Number: JP-ROCHE-741955

PATIENT
  Sex: Male
  Weight: 3.3 kg

DRUGS (1)
  1. OSELTAMIVIR [Suspect]
     Dosage: DOSE FORM: ORAL FORMATION
     Route: 064
     Dates: start: 20091028, end: 20091106

REACTIONS (3)
  - DRUG EXPOSURE DURING PREGNANCY [None]
  - ECZEMA [None]
  - NORMAL NEWBORN [None]
